FAERS Safety Report 21412805 (Version 1)
Quarter: 2022Q4

REPORT INFORMATION
  Report Type: Spontaneous
  Country: US (occurrence: None)
  Receive Date: 20221004
  Receipt Date: 20221004
  Transmission Date: 20230113
  Serious: Yes (Death)
  Sender: FDA-Public Use
  Company Number: None

PATIENT
  Sex: Female

DRUGS (20)
  1. APREPITANT [Suspect]
     Active Substance: APREPITANT
     Indication: Breast cancer female
     Dosage: FREQUENCY : DAILY;?
     Route: 048
     Dates: start: 202112
  2. CYCLOPHOSPHAMIDE [Suspect]
     Active Substance: CYCLOPHOSPHAMIDE
     Indication: Breast cancer female
     Dosage: OTHER FREQUENCY : Q 2 WEEKS;?
     Route: 042
     Dates: start: 202112
  3. DOXORUBICIN [Concomitant]
     Active Substance: DOXORUBICIN
  4. PACLITAXEL [Concomitant]
     Active Substance: PACLITAXEL
  5. ACETAMINOPHEN [Concomitant]
     Active Substance: ACETAMINOPHEN
  6. ADRIAMYCIN [Concomitant]
     Active Substance: DOXORUBICIN HYDROCHLORIDE
  7. ANASTROZOLE [Concomitant]
     Active Substance: ANASTROZOLE
  8. CALCIUM\VITAMIN D [Concomitant]
     Active Substance: CALCIUM\VITAMIN D
  9. ENOXAPARIN SODIUM [Concomitant]
     Active Substance: ENOXAPARIN SODIUM
  10. ERGOCALCIFEROL [Concomitant]
     Active Substance: ERGOCALCIFEROL
  11. GABAPENTIN [Concomitant]
     Active Substance: GABAPENTIN
  12. MIRTAZAPINE [Concomitant]
     Active Substance: MIRTAZAPINE
  13. MORPHINE SULFATE [Concomitant]
     Active Substance: MORPHINE SULFATE
  14. OXYCODONE [Concomitant]
     Active Substance: OXYCODONE
  15. PERCOCET [Concomitant]
     Active Substance: ACETAMINOPHEN\OXYCODONE HYDROCHLORIDE
  16. POLYETHYLENE GLYCOL [Concomitant]
     Active Substance: POLYETHYLENE GLYCOL
  17. SENNA [Concomitant]
     Active Substance: SENNA LEAF\SENNOSIDES\SENNOSIDES A AND B
  18. TRAMADOL [Concomitant]
     Active Substance: TRAMADOL
  19. VANCOMYCIN [Concomitant]
     Active Substance: VANCOMYCIN
  20. ZOSYN [Concomitant]
     Active Substance: PIPERACILLIN SODIUM\TAZOBACTAM SODIUM

REACTIONS (1)
  - Death [None]
